FAERS Safety Report 20701823 (Version 1)
Quarter: 2022Q2

REPORT INFORMATION
  Report Type: Spontaneous
  Country: AU (occurrence: AU)
  Receive Date: 20220412
  Receipt Date: 20220412
  Transmission Date: 20220721
  Serious: Yes (Hospitalization)
  Sender: FDA-Public Use
  Company Number: AU-ELI_LILLY_AND_COMPANY-AU202204004908

PATIENT
  Age: 78 Year
  Sex: Male

DRUGS (10)
  1. PEMETREXED [Suspect]
     Active Substance: PEMETREXED
     Indication: Non-small cell lung cancer
     Dosage: 970 MG, CYCLICAL (CYCLE 2 DAY 1))
     Route: 042
     Dates: start: 20210922
  2. BINTRAFUSP ALFA [Suspect]
     Active Substance: BINTRAFUSP ALFA
     Indication: Non-small cell lung cancer
     Dosage: 99 MG, CYCLICAL
     Route: 042
     Dates: start: 20210728
  3. BINTRAFUSP ALFA [Suspect]
     Active Substance: BINTRAFUSP ALFA
     Dosage: 2400 MG, CYCLICAL (CYCLE2 DAY1)
     Route: 042
     Dates: start: 20210922
  4. CARBOPLATIN [Suspect]
     Active Substance: CARBOPLATIN
     Indication: Non-small cell lung cancer
     Dosage: 460 MG, CYCLICAL (CYCLE2DAY1)
     Route: 042
     Dates: start: 20210922
  5. LORATADINE [Concomitant]
     Active Substance: LORATADINE
     Indication: Pruritus
     Dosage: UNK
     Dates: start: 20210920
  6. APREPITANT [Concomitant]
     Active Substance: APREPITANT
     Indication: Premedication
     Dosage: UNK
     Dates: start: 20210921, end: 20210921
  7. POLARAMINE [Concomitant]
     Active Substance: DEXCHLORPHENIRAMINE MALEATE
     Indication: Pruritus
     Dosage: UNK
     Dates: start: 20210921
  8. DEXAMETHASONE [Concomitant]
     Active Substance: DEXAMETHASONE
     Indication: Premedication
     Dosage: UNK
     Dates: start: 20210920
  9. VITAMIN B12 [Concomitant]
     Active Substance: CYANOCOBALAMIN
     Indication: Product used for unknown indication
     Dosage: UNK
  10. FOLIC ACID [Concomitant]
     Active Substance: FOLIC ACID
     Indication: Chemotherapy
     Dosage: UNK
     Dates: start: 20210915

REACTIONS (5)
  - Small intestinal obstruction [Not Recovered/Not Resolved]
  - Abdominal distension [Unknown]
  - Body temperature increased [Unknown]
  - Vomiting [Not Recovered/Not Resolved]
  - Nausea [Not Recovered/Not Resolved]

NARRATIVE: CASE EVENT DATE: 20210922
